FAERS Safety Report 11714596 (Version 2)
Quarter: 2015Q4

REPORT INFORMATION
  Report Type: Spontaneous
  Country: JP (occurrence: JP)
  Receive Date: 20151109
  Receipt Date: 20151110
  Transmission Date: 20160304
  Serious: Yes (Hospitalization)
  Sender: FDA-Public Use
  Company Number: JP-SA-2015SA142594

PATIENT
  Sex: Female

DRUGS (7)
  1. OXALIPLATIN. [Suspect]
     Active Substance: OXALIPLATIN
     Indication: COLON CANCER
     Route: 065
     Dates: start: 200911, end: 201008
  2. LEUCOVORIN. [Concomitant]
     Active Substance: LEUCOVORIN
     Indication: COLORECTAL CANCER METASTATIC
     Dates: start: 200911, end: 201008
  3. FLUOROURACIL. [Concomitant]
     Active Substance: FLUOROURACIL
     Indication: COLORECTAL CANCER METASTATIC
     Dates: start: 200911
  4. ZOLEDRONIC ACID [Suspect]
     Active Substance: ZOLEDRONIC ACID
     Indication: METASTASES TO BONE
     Dosage: FOR OVER 15 MINUTES
     Route: 042
     Dates: start: 200911, end: 201104
  5. ZOLEDRONIC ACID [Suspect]
     Active Substance: ZOLEDRONIC ACID
     Indication: METASTASES TO BONE
  6. BEVACIZUMAB [Concomitant]
     Active Substance: BEVACIZUMAB
     Indication: COLORECTAL CANCER METASTATIC
     Dates: start: 200911
  7. IRINOTECAN [Concomitant]
     Active Substance: IRINOTECAN
     Indication: COLORECTAL CANCER METASTATIC
     Dates: start: 201008

REACTIONS (16)
  - Neuropathy peripheral [Unknown]
  - Renal tubular acidosis [Recovered/Resolved]
  - Beta 2 microglobulin urine increased [Recovered/Resolved]
  - PCO2 decreased [Recovered/Resolved]
  - Fanconi syndrome [Recovered/Resolved]
  - Proteinuria [Recovered/Resolved]
  - Renal glycosuria [Recovered/Resolved]
  - Hypophosphataemia [Recovered/Resolved]
  - Aminoaciduria [Recovered/Resolved]
  - Blood bicarbonate decreased [Recovered/Resolved]
  - Blood sodium decreased [Recovered/Resolved]
  - Hypocalcaemia [Recovered/Resolved]
  - Electrolyte imbalance [Recovered/Resolved]
  - Hypokalaemia [Recovered/Resolved]
  - Renal tubular disorder [Recovered/Resolved]
  - Hypouricaemia [Recovered/Resolved]

NARRATIVE: CASE EVENT DATE: 201003
